FAERS Safety Report 7548153-0 (Version None)
Quarter: 2011Q2

REPORT INFORMATION
  Report Type: 
  Country: None (occurrence: None)
  Receive Date: 20110524
  Receipt Date: 20110126
  Transmission Date: 20111010
  Serious: No
  Sender: FDA-Public Use
  Company Number: 026456

PATIENT
  Sex: Female
  Weight: 83.5 kg

DRUGS (3)
  1. AZATHIOPRINE [Concomitant]
  2. CIMZIA [Suspect]
     Indication: CROHN'S DISEASE
     Dosage: 400 MG 1X/2 WEEKS SUBCUTANEOUS, 200 MG 1X/2 WEEKS SUBCUTANEOS
     Route: 058
     Dates: start: 20100519, end: 20100601
  3. CIMZIA [Suspect]
     Indication: CROHN'S DISEASE
     Dosage: 400 MG 1X/2 WEEKS SUBCUTANEOUS, 200 MG 1X/2 WEEKS SUBCUTANEOS
     Route: 058
     Dates: start: 20100601

REACTIONS (1)
  - SKIN DISCOLOURATION [None]
